FAERS Safety Report 26148352 (Version 1)
Quarter: 2025Q4

REPORT INFORMATION
  Report Type: Spontaneous
  Country: US (occurrence: US)
  Receive Date: 20251212
  Receipt Date: 20251212
  Transmission Date: 20260117
  Serious: Yes (Death, Hospitalization, Other)
  Sender: UNITED THERAPEUTICS
  Company Number: US-UNITED THERAPEUTICS-UNT-2025-041636

PATIENT
  Age: 38 Year
  Sex: Female

DRUGS (3)
  1. REMODULIN [Suspect]
     Active Substance: TREPROSTINIL
     Indication: Pulmonary arterial hypertension
     Dosage: UNK, CONTINUING
  2. WARFARIN [Concomitant]
     Active Substance: WARFARIN
     Indication: Pulmonary arterial hypertension
  3. SILDENAFIL [Concomitant]
     Active Substance: SILDENAFIL
     Indication: Pulmonary arterial hypertension

REACTIONS (5)
  - Acute respiratory failure [Fatal]
  - Acute kidney injury [Fatal]
  - Influenza [Fatal]
  - Hypotension [Fatal]
  - Therapy non-responder [Unknown]
